FAERS Safety Report 7148613-0 (Version None)
Quarter: 2010Q4

REPORT INFORMATION
  Report Type: 
  Country: None (occurrence: None)
  Receive Date: 20101209
  Receipt Date: 20100721
  Transmission Date: 20110411
  Serious: Yes (Hospitalization)
  Sender: FDA-Public Use
  Company Number: A0865093A

PATIENT
  Age: 59 Year
  Sex: Female

DRUGS (2)
  1. AVANDAMET [Suspect]
     Dosage: 1TAB TWICE PER DAY
     Dates: start: 20040301, end: 20051101
  2. AVANDIA [Suspect]
     Dosage: 2MG TWICE PER DAY
     Dates: start: 20081001, end: 20090101

REACTIONS (1)
  - CARDIAC FAILURE CONGESTIVE [None]
